FAERS Safety Report 22182679 (Version 3)
Quarter: 2023Q2

REPORT INFORMATION
  Report Type: Spontaneous
  Country: US (occurrence: US)
  Receive Date: 20230406
  Receipt Date: 20230519
  Transmission Date: 20230722
  Serious: No
  Sender: FDA-Public Use
  Company Number: US-PFIZER INC-202300128979

PATIENT
  Age: 61 Year
  Sex: Female

DRUGS (1)
  1. PREMARIN [Suspect]
     Active Substance: ESTROGENS, CONJUGATED
     Dosage: 1 G, WEEKLY (1GM ONCE PER WEEK)
     Dates: start: 2018

REACTIONS (3)
  - Device maintenance issue [Unknown]
  - Circumstance or information capable of leading to device use error [Unknown]
  - Off label use [Unknown]

NARRATIVE: CASE EVENT DATE: 20180101
